FAERS Safety Report 23557515 (Version 2)
Quarter: 2024Q1

REPORT INFORMATION
  Report Type: Spontaneous
  Country: GB (occurrence: GB)
  Receive Date: 20240223
  Receipt Date: 20240306
  Transmission Date: 20240410
  Serious: Yes (Hospitalization)
  Sender: FDA-Public Use
  Company Number: GB-NEBO-PC013071

PATIENT
  Age: 30 Year
  Sex: Female
  Weight: 86.5 kg

DRUGS (3)
  1. IRON ISOMALTOSIDE 1000 [Suspect]
     Active Substance: IRON ISOMALTOSIDE 1000
     Indication: Haemoglobin decreased
     Route: 050
     Dates: start: 20240103, end: 20240103
  2. ERYTHROMYCIN [Concomitant]
     Active Substance: ERYTHROMYCIN
     Indication: Antibiotic therapy
     Route: 050
     Dates: start: 20231230, end: 20240104
  3. FERROUS SULFATE [Concomitant]
     Active Substance: FERROUS SULFATE
     Indication: Anaemia
     Route: 050
     Dates: start: 20231229

REACTIONS (6)
  - Premature delivery [Recovered/Resolved]
  - Chest pain [Unknown]
  - Hyperhidrosis [Unknown]
  - Dyspnoea [Unknown]
  - Amniotic cavity infection [Unknown]
  - Maternal exposure during pregnancy [Recovered/Resolved]

NARRATIVE: CASE EVENT DATE: 20240101
